FAERS Safety Report 8493213-3 (Version None)
Quarter: 2012Q3

REPORT INFORMATION
  Report Type: 
  Country: None (occurrence: None)
  Receive Date: 20120706
  Receipt Date: 20120704
  Transmission Date: 20120928
  Serious: Yes (Death, Hospitalization)
  Sender: FDA-Public Use
  Company Number: CA-B.I. PHARMACEUTICALS,INC./RIDGEFIELD-2012-CN-00294CN

PATIENT
  Age: 77 Year
  Sex: Female

DRUGS (15)
  1. APO K [Concomitant]
     Route: 065
  2. MERREM [Concomitant]
     Route: 042
  3. ZOFRAN [Concomitant]
     Route: 065
  4. METOPROLOL [Concomitant]
     Route: 065
  5. PRADAXA [Suspect]
     Indication: AORTIC VALVE REPLACEMENT
     Dosage: 220 MG
     Route: 048
     Dates: start: 20110101, end: 20110101
  6. ATACAND [Concomitant]
     Route: 065
  7. LEVOFLOXACIN [Concomitant]
     Route: 065
  8. ADALAT CC [Concomitant]
     Route: 065
  9. FUROSEMIDE [Concomitant]
     Route: 065
  10. ASPIRIN [Concomitant]
     Route: 065
  11. MIRTAZAPINE [Concomitant]
     Route: 065
  12. VENTOLIN [Concomitant]
     Route: 065
  13. CEFTAZIDIME FOR INJECTION, USP [Concomitant]
     Route: 030
  14. METOCLOPRAMIDE [Concomitant]
     Route: 065
  15. PLAVIX [Concomitant]
     Route: 065

REACTIONS (9)
  - CARDIAC FAILURE CONGESTIVE [None]
  - PNEUMONIA [None]
  - MITRAL VALVE CALCIFICATION [None]
  - RENAL FAILURE ACUTE [None]
  - ACUTE CORONARY SYNDROME [None]
  - THROMBOSIS [None]
  - ENDOCARDITIS [None]
  - MITRAL VALVE INCOMPETENCE [None]
  - CONDITION AGGRAVATED [None]
